FAERS Safety Report 9613149 (Version 2)
Quarter: 2013Q4

REPORT INFORMATION
  Report Type: Spontaneous
  Country: US (occurrence: US)
  Receive Date: 20131010
  Receipt Date: 20131219
  Transmission Date: 20140711
  Serious: Yes (Other)
  Sender: FDA-Public Use
  Company Number: US-BAYER-2013-122665

PATIENT
  Age: 67 Year
  Sex: Female
  Weight: 62.59 kg

DRUGS (1)
  1. ALEVE CAPLET [Suspect]
     Indication: HEADACHE
     Dosage: 1 DF, ONCE

REACTIONS (2)
  - Deafness unilateral [None]
  - Drug hypersensitivity [None]
